FAERS Safety Report 4698330-1 (Version None)
Quarter: 2005Q2

REPORT INFORMATION
  Report Type: 
  Country: None (occurrence: None)
  Receive Date: 20050623
  Receipt Date: 20050614
  Transmission Date: 20051028
  Serious: Yes (Other)
  Sender: FDA-Public Use
  Company Number: FR-BRISTOL-MYERS SQUIBB COMPANY-13012034

PATIENT
  Age: 50 Year
  Sex: Male

DRUGS (1)
  1. VASTEN TABS [Suspect]
     Route: 048
     Dates: end: 20050519

REACTIONS (1)
  - MUSCLE INJURY [None]
